FAERS Safety Report 10515966 (Version 1)
Quarter: 2014Q4

REPORT INFORMATION
  Report Type: Spontaneous
  Country: BR (occurrence: BR)
  Receive Date: 20141014
  Receipt Date: 20141014
  Transmission Date: 20150528
  Serious: Yes (Other)
  Sender: FDA-Public Use
  Company Number: BR-RANBAXY-2014R5-86478

PATIENT
  Sex: Female
  Weight: 66 kg

DRUGS (6)
  1. DESVENLAFAXINE. [Concomitant]
     Active Substance: DESVENLAFAXINE
     Indication: PRODUCT USED FOR UNKNOWN INDICATION
     Dosage: UNK
     Route: 065
  2. MIRTAZAPINE. [Concomitant]
     Active Substance: MIRTAZAPINE
     Indication: PRODUCT USED FOR UNKNOWN INDICATION
     Dosage: UNK
     Route: 065
  3. TRAZODONE [Concomitant]
     Active Substance: TRAZODONE HYDROCHLORIDE
     Indication: PRODUCT USED FOR UNKNOWN INDICATION
     Dosage: UNK
     Route: 065
  4. SELZIC TABLETS 300MG [Suspect]
     Active Substance: OXCARBAZEPINE
     Indication: DEPRESSION
     Dosage: 300 MG, BID
     Route: 048
     Dates: start: 2014, end: 201409
  5. FLUCONAZOLE. [Concomitant]
     Active Substance: FLUCONAZOLE
     Indication: PRODUCT USED FOR UNKNOWN INDICATION
     Dosage: UNK
     Route: 065
  6. CLOXAZOLAN [Concomitant]
     Indication: PRODUCT USED FOR UNKNOWN INDICATION
     Dosage: UNK
     Route: 065

REACTIONS (5)
  - Crying [Unknown]
  - Intentional product misuse [Unknown]
  - Suicidal ideation [Unknown]
  - Insomnia [Recovered/Resolved]
  - Feeling abnormal [Unknown]

NARRATIVE: CASE EVENT DATE: 2014
